FAERS Safety Report 16116590 (Version 1)
Quarter: 2019Q1

REPORT INFORMATION
  Report Type: Spontaneous
  Country: GB (occurrence: GB)
  Receive Date: 20190326
  Receipt Date: 20190326
  Transmission Date: 20190418
  Serious: Yes (Other)
  Sender: FDA-Public Use
  Company Number: GB-ACCORD-114328

PATIENT
  Age: 64 Year
  Sex: Male
  Weight: 77 kg

DRUGS (9)
  1. CALCIPOTRIOL [Concomitant]
     Active Substance: CALCIPOTRIENE
     Dosage: APPLY.
     Dates: start: 20180629
  2. RAMIPRIL. [Suspect]
     Active Substance: RAMIPRIL
     Indication: ALBUMINURIA
     Dates: start: 20181010
  3. COAL TAR. [Concomitant]
     Active Substance: COAL TAR
     Dosage: USE AS DIRECTED.
     Dates: start: 20180629
  4. METFORMIN [Concomitant]
     Active Substance: METFORMIN HYDROCHLORIDE
     Dates: start: 20180629
  5. BETNOVATE [Concomitant]
     Active Substance: BETAMETHASONE
     Dosage: USE AS DIRECTED.
     Dates: start: 20180629
  6. AMOXIL [Concomitant]
     Active Substance: AMOXICILLIN
     Dates: start: 20181026, end: 20181102
  7. LOSARTAN. [Concomitant]
     Active Substance: LOSARTAN
     Dates: start: 20181120
  8. MOMETASONE [Concomitant]
     Active Substance: MOMETASONE
     Dosage: SPRAYS. TO EACH NOSTRIL.
     Route: 045
     Dates: start: 20181026, end: 20181109
  9. ATORVASTATIN [Concomitant]
     Active Substance: ATORVASTATIN
     Indication: HYPERCHOLESTEROLAEMIA
     Dosage: NIGHT.
     Dates: start: 20180629, end: 20181005

REACTIONS (1)
  - Skin exfoliation [Recovered/Resolved]

NARRATIVE: CASE EVENT DATE: 20181120
